FAERS Safety Report 24077846 (Version 2)
Quarter: 2025Q3

REPORT INFORMATION
  Report Type: Spontaneous
  Country: US (occurrence: US)
  Receive Date: 20240711
  Receipt Date: 20250728
  Transmission Date: 20251021
  Serious: No
  Sender: RECORDATI
  Company Number: US-RECORDATI RARE DISEASE INC.-2024003380

PATIENT

DRUGS (1)
  1. PANHEMATIN [Suspect]
     Active Substance: HEMIN
     Indication: Porphyria acute
     Dates: start: 20240416

REACTIONS (5)
  - Constipation [Unknown]
  - Anorectal swelling [Unknown]
  - Abdominal pain [Unknown]
  - Malaise [Unknown]
  - Dehydration [Unknown]

NARRATIVE: CASE EVENT DATE: 20240504
